FAERS Safety Report 9802016 (Version 1)
Quarter: 2014Q1

REPORT INFORMATION
  Report Type: Spontaneous
  Country: US (occurrence: US)
  Receive Date: 20140107
  Receipt Date: 20140107
  Transmission Date: 20141002
  Serious: No
  Sender: FDA-Public Use
  Company Number: US-BIOGENIDEC-2013BI079443

PATIENT
  Age: 58 Year
  Sex: Female

DRUGS (22)
  1. TECFIDERA [Suspect]
     Indication: MULTIPLE SCLEROSIS
     Route: 048
     Dates: start: 20130625
  2. TECFIDERA [Suspect]
     Indication: MULTIPLE SCLEROSIS
     Dates: start: 20130627
  3. MAGNESIUM OXIDE [Concomitant]
  4. EVENING PRIMROSE [Concomitant]
  5. TURMERIC CAPSULE [Concomitant]
  6. CHARCOAL CAPSULE [Concomitant]
  7. DIGESTIVE ENZYME CAPSULE [Concomitant]
  8. GARLIC CAPSULE [Concomitant]
  9. FOLIC ACID [Concomitant]
  10. POTASSIUM TABS [Concomitant]
  11. MILK THISTLE CAPS [Concomitant]
  12. MELATONIN [Concomitant]
  13. ESTRADIOM [Concomitant]
  14. ARMOUR THYROID [Concomitant]
  15. L-CARNITINE CAPS [Concomitant]
  16. NUVIGIL [Concomitant]
  17. MEDROXYPROGESTERONE [Concomitant]
  18. VITAMIN D [Concomitant]
  19. VITAMIN C [Concomitant]
  20. OMEGA OIL CAPS [Concomitant]
  21. EVOXAC CAPS [Concomitant]
  22. ALPHA LIPOIC ACID CAP [Concomitant]

REACTIONS (3)
  - Epistaxis [Not Recovered/Not Resolved]
  - Nausea [Not Recovered/Not Resolved]
  - Diarrhoea [Not Recovered/Not Resolved]
